FAERS Safety Report 16274456 (Version 1)
Quarter: 2019Q2

REPORT INFORMATION
  Report Type: Report from Study
  Country: AU (occurrence: AU)
  Receive Date: 20190504
  Receipt Date: 20190504
  Transmission Date: 20190711
  Serious: Yes (Other)
  Sender: FDA-Public Use
  Company Number: AU-ACCORD-125762

PATIENT
  Sex: Female

DRUGS (4)
  1. FOLINIC ACID [Concomitant]
     Active Substance: LEUCOVORIN
     Indication: ECTOPIC PREGNANCY
     Dosage: GIVEN AT 30, 42, 54 AND 66 H POST COMMENCEMENT OF METHOTREXATE
     Route: 048
  2. URAL [Concomitant]
     Indication: URINE ALKALINISATION THERAPY
     Route: 048
  3. METHOTREXATE. [Suspect]
     Active Substance: METHOTREXATE
     Indication: ECTOPIC PREGNANCY
     Dosage: 100 MG IV PUSH OVER 5-10 MIN FOLLOWED BY 200 MG/500ML NORMAL SALINE IV INFUSION OVER 12 H
     Route: 042
  4. POTASSIUM [Concomitant]
     Active Substance: POTASSIUM
     Indication: ECTOPIC PREGNANCY
     Dosage: INTRAGESTATIONAL, 7 DAYS POST METHOTREXATE THERAPY

REACTIONS (4)
  - Off label use [Unknown]
  - Treatment failure [Unknown]
  - Maternal exposure during pregnancy [Unknown]
  - Vaginal haemorrhage [Unknown]
